FAERS Safety Report 17786055 (Version 3)
Quarter: 2020Q3

REPORT INFORMATION
  Report Type: Report from Study
  Country: None (occurrence: NL)
  Receive Date: 20200513
  Receipt Date: 20200930
  Transmission Date: 20201102
  Serious: Yes (Hospitalization, Other)
  Sender: FDA-Public Use
  Company Number: NL-ABBVIE-20K-114-3402794-00

PATIENT
  Age: 76 Year
  Sex: Male

DRUGS (6)
  1. DUODOPA [Suspect]
     Active Substance: CARBIDOPA\LEVODOPA
     Dosage: MD: 4.3ML, CD: 4.6ML/H, ED: 4.0ML, REMAINS AT 16 HOURS
     Route: 050
  2. DUODOPA [Suspect]
     Active Substance: CARBIDOPA\LEVODOPA
     Dosage: MD: 4.3ML, CD: 4.3ML/H, ED: 4.0ML?REMAINS AT 16 HOURS
     Route: 050
  3. ROPINIROLE. [Concomitant]
     Active Substance: ROPINIROLE
     Indication: MOOD ALTERED
  4. EXELON [Concomitant]
     Active Substance: RIVASTIGMINE TARTRATE
     Indication: PRODUCT USED FOR UNKNOWN INDICATION
  5. DUODOPA [Suspect]
     Active Substance: CARBIDOPA\LEVODOPA
     Indication: PARKINSON^S DISEASE
     Dosage: MD: 13.0ML, CD: 4.6ML/H, ED: 4.0ML
     Route: 050
     Dates: start: 20181120
  6. DUODOPA [Suspect]
     Active Substance: CARBIDOPA\LEVODOPA
     Dosage: MD: 4.3ML, CD: 4.5ML/H, ED: 4.0ML, REMAINS AT 16 HOURS
     Route: 050

REACTIONS (4)
  - Abdominal operation [Unknown]
  - Urinary tract infection [Recovered/Resolved]
  - Polyp [Unknown]
  - Anorectal operation [Recovered/Resolved]

NARRATIVE: CASE EVENT DATE: 202005
